FAERS Safety Report 7420010-X (Version None)
Quarter: 2011Q2

REPORT INFORMATION
  Report Type: 
  Country: None (occurrence: None)
  Receive Date: 20110413
  Receipt Date: 20110413
  Transmission Date: 20111010
  Serious: Yes (Hospitalization)
  Sender: FDA-Public Use
  Company Number: None

PATIENT
  Sex: Female
  Weight: 56.6996 kg

DRUGS (1)
  1. BONIVA [Suspect]
     Indication: OSTEOPENIA
     Dosage: 1 X MONTH  ONE TIME USE
     Dates: start: 20110215

REACTIONS (10)
  - DIZZINESS [None]
  - DEHYDRATION [None]
  - SYNCOPE [None]
  - VOMITING [None]
  - HEADACHE [None]
  - BACK PAIN [None]
  - DECREASED APPETITE [None]
  - CHEST PAIN [None]
  - PYREXIA [None]
  - OEDEMA PERIPHERAL [None]
